FAERS Safety Report 23908776 (Version 3)
Quarter: 2024Q2

REPORT INFORMATION
  Report Type: Spontaneous
  Country: SE (occurrence: SE)
  Receive Date: 20240528
  Receipt Date: 20240612
  Transmission Date: 20240716
  Serious: Yes (Hospitalization, Other)
  Sender: FDA-Public Use
  Company Number: SE-BAYER-2024A074649

PATIENT
  Age: 49 Year
  Sex: Female

DRUGS (1)
  1. MIRENA [Suspect]
     Active Substance: LEVONORGESTREL
     Indication: Heavy menstrual bleeding
     Dosage: 20?G/DAY
     Route: 015
     Dates: start: 20240517, end: 20240519

REACTIONS (5)
  - Pyrexia [None]
  - Syncope [None]
  - Malaise [None]
  - Abdominal pain lower [None]
  - Nausea [None]

NARRATIVE: CASE EVENT DATE: 20240518
